FAERS Safety Report 14583244 (Version 1)
Quarter: 2018Q1

REPORT INFORMATION
  Report Type: Spontaneous
  Country: DE (occurrence: DE)
  Receive Date: 20180228
  Receipt Date: 20180228
  Transmission Date: 20180509
  Serious: Yes (Other)
  Sender: FDA-Public Use
  Company Number: DE-SHIRE-DE201807452

PATIENT

DRUGS (1)
  1. INTUNIV [Suspect]
     Active Substance: GUANFACINE HYDROCHLORIDE
     Indication: AUTISM SPECTRUM DISORDER
     Dosage: 1-3MG
     Route: 048
     Dates: start: 20170610

REACTIONS (7)
  - Depression [Not Recovered/Not Resolved]
  - Insomnia [Not Recovered/Not Resolved]
  - Intellectual disability [Unknown]
  - Loss of libido [Unknown]
  - Aggression [Recovering/Resolving]
  - Female sexual dysfunction [Recovering/Resolving]
  - Suicidal ideation [Not Recovered/Not Resolved]
